FAERS Safety Report 9003847 (Version 1)
Quarter: 2013Q1

REPORT INFORMATION
  Report Type: Spontaneous
  Country: US (occurrence: US)
  Receive Date: 20130108
  Receipt Date: 20130108
  Transmission Date: 20140127
  Serious: No
  Sender: FDA-Public Use
  Company Number: US-GLAXOSMITHKLINE-A0993878A

PATIENT
  Age: 56 Year
  Sex: Male

DRUGS (9)
  1. LOVAZA [Suspect]
     Indication: BLOOD TRIGLYCERIDES INCREASED
     Route: 048
     Dates: start: 200909
  2. METFORMIN [Concomitant]
  3. TAMSULOSIN [Concomitant]
  4. OMEPRAZOLE [Concomitant]
  5. BENICAR [Concomitant]
  6. ATENOLOL [Concomitant]
  7. FLUOXETINE [Concomitant]
  8. LIPITOR [Concomitant]
  9. ALPRAZOLAM [Concomitant]

REACTIONS (2)
  - Medication residue present [Not Recovered/Not Resolved]
  - Product quality issue [Unknown]
